FAERS Safety Report 7726375-3 (Version None)
Quarter: 2011Q3

REPORT INFORMATION
  Report Type: 
  Country: None (occurrence: None)
  Receive Date: 20110902
  Receipt Date: 20110830
  Transmission Date: 20111222
  Serious: Yes (Death, Life-Threatening, Hospitalization, Other)
  Sender: FDA-Public Use
  Company Number: JP-BAYER-201011360BYL

PATIENT
  Age: 56 Year
  Sex: Female
  Weight: 46 kg

DRUGS (25)
  1. CISPLATIN [Suspect]
  2. ZOLPIDEM [Concomitant]
     Indication: INSOMNIA
     Dosage: SINCE BEFORE ADMINISTRATION
     Route: 048
  3. DIART [Concomitant]
     Dosage: 30 MG, QD
     Route: 048
     Dates: start: 20100217, end: 20100420
  4. ALBUMIN (HUMAN) [Concomitant]
     Dosage: 12.5 G QD
     Route: 042
     Dates: start: 20100401, end: 20100405
  5. ROCEPHIN [Concomitant]
     Dosage: 1 G, QD
     Route: 042
     Dates: start: 20100312, end: 20100331
  6. CISPLATIN [Suspect]
     Indication: HEPATIC NEOPLASM MALIGNANT
     Route: 041
     Dates: start: 20091021, end: 20091126
  7. MAGMITT [Concomitant]
     Indication: CONSTIPATION
     Dosage: SINCE BEFORE ADMINISTRATION
     Route: 048
  8. URSO 250 [Concomitant]
     Dosage: 300 MG (DAILY DOSE)
     Route: 048
  9. VOLTAREN [Suspect]
     Indication: PAIN MANAGEMENT
     Dosage: 25MG 2-3 TIMES/DAY
     Route: 054
  10. VOLTAREN [Suspect]
     Dosage: 50 MG, QD
     Route: 054
     Dates: start: 20100301, end: 20100308
  11. LASIX [Concomitant]
     Dosage: SINCE BEFORE ADMINISTRATION
     Route: 048
     Dates: end: 20100124
  12. ALDACTONE [Concomitant]
     Dosage: SINCE BEFORE ADMINISTRATION
     Route: 048
  13. PREDNISOLONE [Concomitant]
     Dosage: SINCE BEFORE ADMINISTRATION
     Route: 048
     Dates: end: 20100311
  14. AMINOLEBAN [Concomitant]
     Dosage: 20 ML, QD
     Route: 041
     Dates: start: 20100308, end: 20100425
  15. UREPEARL [Concomitant]
     Indication: PROPHYLAXIS
     Route: 061
     Dates: start: 20091221
  16. DIART [Concomitant]
     Dosage: 60 MG, QD
     Route: 048
     Dates: start: 20100125, end: 20100211
  17. PREDNISOLONE [Concomitant]
     Dosage: 5 MG, QD
     Route: 042
     Dates: start: 20100312, end: 20100426
  18. MORPHINE HCL ELIXIR [Concomitant]
     Dosage: 4.8 MG, QD
     Route: 042
     Dates: start: 20100414, end: 20100426
  19. NEXAVAR [Suspect]
     Indication: HEPATIC NEOPLASM MALIGNANT
     Route: 048
     Dates: start: 20091221, end: 20091228
  20. NEXAVAR [Suspect]
     Route: 048
     Dates: start: 20100127, end: 20100308
  21. LASIX [Concomitant]
     Dosage: 20 MG, QD
     Route: 042
     Dates: start: 20100120, end: 20100123
  22. LOXONIN [Concomitant]
     Dosage: SINCE BEFORE ADMINISTRATION
     Route: 048
  23. ALBUMIN (HUMAN) [Concomitant]
     Dosage: DAILY DOSE 12.5 G
     Route: 042
     Dates: start: 20100120, end: 20100123
  24. ALBUMIN (HUMAN) [Concomitant]
     Dosage: 12.5 G, QD
     Route: 042
     Dates: start: 20100324, end: 20100328
  25. FAMOTIDINE [Concomitant]
     Indication: GASTRITIS PROPHYLAXIS
     Dosage: SINCE BEFORE ADMINISTRATION
     Route: 048

REACTIONS (5)
  - HEPATIC ENCEPHALOPATHY [None]
  - PALMAR-PLANTAR ERYTHRODYSAESTHESIA SYNDROME [None]
  - HEPATIC FUNCTION ABNORMAL [None]
  - HEPATIC NEOPLASM MALIGNANT [None]
  - GASTROINTESTINAL HAEMORRHAGE [None]
